FAERS Safety Report 7609245-0 (Version None)
Quarter: 2011Q3

REPORT INFORMATION
  Report Type: 
  Country: None (occurrence: None)
  Receive Date: 20110706
  Receipt Date: 20110620
  Transmission Date: 20111222
  Serious: Yes (Hospitalization)
  Sender: FDA-Public Use
  Company Number: 1000021667

PATIENT
  Age: 62 Year
  Sex: Female

DRUGS (5)
  1. ONDANSETRON [Suspect]
  2. ESCITALOPRAM OXALATE [Suspect]
     Indication: PRODUCT USED FOR UNKNOWN INDICATION
     Dosage: 10 MG (10 MG, 1 IN 1 D)
  3. NORTRIPTYLINE HCL [Suspect]
     Dosage: 25 MG (25 MG, 1 IN 1 D)
  4. SUCCINYLCHOLINE CHLORIDE [Suspect]
  5. ESCITALOPRAM [Suspect]
     Indication: PRODUCT USED FOR UNKNOWN INDICATION
     Dosage: 10 MG (10 MG, 1 IN 1 D)

REACTIONS (9)
  - SINUS BRADYCARDIA [None]
  - CARDIAC ARREST [None]
  - VENTRICULAR TACHYCARDIA [None]
  - FIBROSIS [None]
  - LONG QT SYNDROME [None]
  - ATRIOVENTRICULAR BLOCK FIRST DEGREE [None]
  - GASTRIC BYPASS [None]
  - LEFT VENTRICULAR HYPERTROPHY [None]
  - WEIGHT INCREASED [None]
